FAERS Safety Report 5728536-1 (Version None)
Quarter: 2008Q2

REPORT INFORMATION
  Report Type: 
  Country: None (occurrence: None)
  Receive Date: 20080430
  Receipt Date: 20080104
  Transmission Date: 20081010
  Serious: No
  Sender: FDA-Public Use
  Company Number: 2008PV033909

PATIENT
  Age: 68 Year
  Sex: Female

DRUGS (6)
  1. SYMLIN [Suspect]
     Indication: TYPE 2 DIABETES MELLITUS
     Dosage: 180 MCG;TID;SC,120 MCG;TID;SC,60 MCG;TID;SC,30 MCG;TID;SC
     Route: 058
     Dates: start: 20071201, end: 20071201
  2. SYMLIN [Suspect]
     Indication: TYPE 2 DIABETES MELLITUS
     Dosage: 180 MCG;TID;SC,120 MCG;TID;SC,60 MCG;TID;SC,30 MCG;TID;SC
     Route: 058
     Dates: start: 20071201, end: 20071201
  3. SYMLIN [Suspect]
     Indication: TYPE 2 DIABETES MELLITUS
     Dosage: 180 MCG;TID;SC,120 MCG;TID;SC,60 MCG;TID;SC,30 MCG;TID;SC
     Route: 058
     Dates: start: 20071201, end: 20071201
  4. SYMLIN [Suspect]
     Indication: TYPE 2 DIABETES MELLITUS
     Dosage: 180 MCG;TID;SC,120 MCG;TID;SC,60 MCG;TID;SC,30 MCG;TID;SC
     Route: 058
     Dates: start: 20071201
  5. LANTUS [Concomitant]
  6. INSULIN [Concomitant]

REACTIONS (2)
  - BLOOD GLUCOSE INCREASED [None]
  - INCORRECT DOSE ADMINISTERED [None]
